FAERS Safety Report 7753599-1 (Version None)
Quarter: 2011Q3

REPORT INFORMATION
  Report Type: 
  Country: None (occurrence: None)
  Receive Date: 20110915
  Receipt Date: 20110913
  Transmission Date: 20111222
  Serious: Yes (Death, Hospitalization)
  Sender: FDA-Public Use
  Company Number: US-GLAXOSMITHKLINE-A0936219A

PATIENT
  Age: 62 Year
  Sex: Female

DRUGS (1)
  1. AVANDIA [Suspect]
     Indication: TYPE 2 DIABETES MELLITUS
     Dosage: 4MG TWICE PER DAY
     Route: 048
     Dates: start: 20060426, end: 20100801

REACTIONS (6)
  - SEPSIS [None]
  - OSTEOMYELITIS [None]
  - RENAL FAILURE [None]
  - HYPERTENSION [None]
  - CEREBROVASCULAR ACCIDENT [None]
  - CELLULITIS [None]
